FAERS Safety Report 8935509 (Version 1)
Quarter: 2012Q4

REPORT INFORMATION
  Report Type: Spontaneous
  Country: US (occurrence: None)
  Receive Date: 20121128
  Receipt Date: 20121128
  Transmission Date: 20130627
  Serious: No
  Sender: FDA-Public Use
  Company Number: None

PATIENT
  Age: 16 Year
  Sex: Female
  Weight: 53.52 kg

DRUGS (1)
  1. SOLODYN [Suspect]
     Indication: ACNE
     Dosage: 250 mg once daily po
     Route: 048
     Dates: start: 20100801, end: 20110405

REACTIONS (10)
  - Asthma [None]
  - Pneumonia [None]
  - Feeling abnormal [None]
  - Panic attack [None]
  - Dizziness [None]
  - Loss of consciousness [None]
  - Hepatic function abnormal [None]
  - Scar [None]
  - Nervousness [None]
  - Anxiety [None]
